FAERS Safety Report 15676132 (Version 1)
Quarter: 2018Q4

REPORT INFORMATION
  Report Type: Spontaneous
  Country: US (occurrence: US)
  Receive Date: 20181130
  Receipt Date: 20181130
  Transmission Date: 20190205
  Serious: Yes (Other)
  Sender: FDA-Public Use
  Company Number: US-TEVA-2018-US-979543

PATIENT
  Sex: Female

DRUGS (1)
  1. CLONAZEPAM ACTAVIS [Suspect]
     Active Substance: CLONAZEPAM
     Indication: ANXIETY
     Dates: start: 20180828

REACTIONS (7)
  - Insomnia [Unknown]
  - Product substitution issue [Unknown]
  - Cerebrovascular accident [Unknown]
  - Withdrawal syndrome [Unknown]
  - Anxiety [Unknown]
  - Hypertension [Unknown]
  - Drug ineffective [Unknown]
